FAERS Safety Report 6680770-2 (Version None)
Quarter: 2010Q2

REPORT INFORMATION
  Report Type: 
  Country: None (occurrence: None)
  Receive Date: 20100414
  Receipt Date: 20100406
  Transmission Date: 20101027
  Serious: Yes (Hospitalization)
  Sender: FDA-Public Use
  Company Number: US-JNJFOC-20100400476

PATIENT
  Sex: Female
  Weight: 99.79 kg

DRUGS (5)
  1. SIMPONI [Suspect]
     Indication: PSORIATIC ARTHROPATHY
     Route: 058
  2. REMICADE [Suspect]
     Indication: PSORIATIC ARTHROPATHY
     Route: 042
  3. ENBREL [Suspect]
     Indication: PSORIATIC ARTHROPATHY
  4. MORPHINE SULFATE [Concomitant]
     Indication: PAIN
  5. SOMA [Concomitant]
     Indication: PAIN

REACTIONS (3)
  - ACUTE RESPIRATORY DISTRESS SYNDROME [None]
  - ASTHMA [None]
  - PNEUMONITIS [None]
